FAERS Safety Report 10203155 (Version 1)
Quarter: 2014Q2

REPORT INFORMATION
  Report Type: Spontaneous
  Country: FR (occurrence: FR)
  Receive Date: 20140529
  Receipt Date: 20140529
  Transmission Date: 20141212
  Serious: Yes (Hospitalization)
  Sender: FDA-Public Use
  Company Number: FR-ABBVIE-14K-056-1241725-00

PATIENT
  Sex: Male

DRUGS (3)
  1. DEPAKOTE [Suspect]
     Indication: PRODUCT USED FOR UNKNOWN INDICATION
  2. BACLOFEN [Suspect]
     Indication: ALCOHOLISM
     Dates: start: 20120822
  3. BACLOFEN [Suspect]

REACTIONS (3)
  - Libido decreased [Unknown]
  - Somnolence [Unknown]
  - Suicide attempt [Recovered/Resolved]
